FAERS Safety Report 14438281 (Version 2)
Quarter: 2018Q1

REPORT INFORMATION
  Report Type: Spontaneous
  Country: US (occurrence: US)
  Receive Date: 20180125
  Receipt Date: 20180221
  Transmission Date: 20180509
  Serious: Yes (Other)
  Sender: FDA-Public Use
  Company Number: US-DRREDDYS-USA/USA/18/0095895

PATIENT
  Age: 58 Year
  Sex: Female

DRUGS (21)
  1. DOCUSATE/SENNA [Concomitant]
     Active Substance: DOCUSATE SODIUM\SENNA LEAF
     Indication: CONSTIPATION
     Dosage: 50 TO 8.6 MG
     Route: 048
  2. BISACODYL. [Concomitant]
     Active Substance: BISACODYL
     Indication: PROPHYLAXIS
     Route: 048
  3. NIFEDIPINE. [Concomitant]
     Active Substance: NIFEDIPINE
     Indication: HYPERTENSION
     Dosage: EXTENDED RELEASE EVERY MORNING
     Route: 048
  4. METOCLOPRAMIDE. [Concomitant]
     Active Substance: METOCLOPRAMIDE
     Indication: VOMITING
     Dosage: AT MEALS AND AT BEDTIME FOR CHEMOTHERAPY-INDUCED NAUSEA AND VOMITING
     Route: 048
  5. IFOSFAMIDE. [Suspect]
     Active Substance: IFOSFAMIDE
     Indication: LEIOMYOSARCOMA RECURRENT
     Dosage: FOR 4 DAYS.
     Route: 042
  6. LOSARTAN. [Concomitant]
     Active Substance: LOSARTAN
     Indication: PRODUCT USED FOR UNKNOWN INDICATION
     Route: 048
  7. METOCLOPRAMIDE. [Concomitant]
     Active Substance: METOCLOPRAMIDE
     Indication: NAUSEA
  8. DEXAMETHASONE. [Concomitant]
     Active Substance: DEXAMETHASONE
     Indication: PRODUCT USED FOR UNKNOWN INDICATION
     Route: 048
  9. FLUCONAZOLE. [Concomitant]
     Active Substance: FLUCONAZOLE
     Indication: CANDIDA INFECTION
     Route: 048
  10. MESNA. [Suspect]
     Active Substance: MESNA
     Indication: LEIOMYOSARCOMA RECURRENT
     Dosage: OVER 12 HOURS ON DAY 5
     Route: 042
  11. THIAMINE. [Concomitant]
     Active Substance: THIAMINE
     Route: 042
  12. ONDANSETRON [Concomitant]
     Active Substance: ONDANSETRON
     Indication: PRODUCT USED FOR UNKNOWN INDICATION
     Route: 042
  13. PAROXETINE. [Concomitant]
     Active Substance: PAROXETINE
     Indication: GENERALISED ANXIETY DISORDER
     Route: 048
  14. NIFEDIPINE. [Concomitant]
     Active Substance: NIFEDIPINE
     Dosage: EXTENDED RELEASE EVERY EVENING
     Route: 048
  15. IFOSFAMIDE. [Suspect]
     Active Substance: IFOSFAMIDE
     Dosage: OVER 24 HOURS ON DAYS 1 THROUGH 4
  16. MESNA. [Suspect]
     Active Substance: MESNA
     Dosage: OVER 24 HOURS ON DAYS 1 THROUGH 4
  17. THIAMINE. [Concomitant]
     Active Substance: THIAMINE
     Indication: PROPHYLAXIS
     Route: 042
  18. PAROXETINE. [Concomitant]
     Active Substance: PAROXETINE
     Indication: DEPRESSION
  19. DOXORUBICIN [Suspect]
     Active Substance: DOXORUBICIN
     Indication: LEIOMYOSARCOMA RECURRENT
     Dosage: OVER 24 HOURS ON DAYS 1 TO 3
     Route: 042
  20. OXYCODONE [Concomitant]
     Active Substance: OXYCODONE
     Indication: PAIN
     Route: 048
  21. CLONIDINE. [Concomitant]
     Active Substance: CLONIDINE
     Indication: CONSTIPATION
     Route: 048

REACTIONS (1)
  - Febrile neutropenia [Unknown]
